FAERS Safety Report 5067488-7 (Version None)
Quarter: 2006Q3

REPORT INFORMATION
  Report Type: 
  Country: None (occurrence: None)
  Receive Date: 20060713
  Receipt Date: 20060605
  Transmission Date: 20061208
  Serious: Yes (Other)
  Sender: FDA-Public Use
  Company Number: 239572

PATIENT
  Age: 55 Year
  Sex: Female
  Weight: 72.3 kg

DRUGS (24)
  1. ACTIVELLA [Suspect]
     Indication: MENOPAUSAL SYMPTOMS
     Dosage: 1 TAB, ORAL
     Route: 048
     Dates: start: 20021001, end: 20030601
  2. PREMARIN [Suspect]
     Indication: MENOPAUSAL SYMPTOMS
     Dosage: 0.625 MG
     Dates: start: 19940701, end: 19980701
  3. PROVERA [Suspect]
     Indication: MENOPAUSAL SYMPTOMS
     Dosage: 10 MG
     Dates: start: 19940701, end: 19970101
  4. PREMPRO [Suspect]
     Indication: MENOPAUSAL SYMPTOMS
     Dosage: 0.625 MG/ 2.5 MG
     Dates: start: 19980701, end: 20020701
  5. PREMARIN [Suspect]
     Indication: MENOPAUSAL SYMPTOMS
     Dosage: SEE IMAGE
     Dates: start: 19950101, end: 19950101
  6. PREMARIN [Suspect]
     Indication: MENOPAUSAL SYMPTOMS
     Dosage: SEE IMAGE
     Dates: start: 20000101, end: 20000101
  7. IBUPROFEN [Concomitant]
  8. ORUVAIL [Concomitant]
  9. PHENAZOPYRIDINE [Concomitant]
  10. CLEOCIN (CLINDAMYCIN HYDROCHLORIDE) [Concomitant]
  11. DIFLUCAN [Concomitant]
  12. PROPULSID [Concomitant]
  13. AUGMENTIN [Concomitant]
  14. ZITHROMAX [Concomitant]
  15. PRILOSEC [Concomitant]
  16. TEQUIN [Concomitant]
  17. METOCLOPRAMIDE [Concomitant]
  18. NEXIUM [Concomitant]
  19. NASACORT AQ (TRIAMCINOLONE ACETONIDE) [Concomitant]
  20. ZOCOR [Concomitant]
  21. CEPHALEXIN [Concomitant]
  22. NOVASAL (PHENYLTOLOXAMINE CITRATE, MAGNESIUM SALICYLATE) [Concomitant]
  23. CIPRO [Concomitant]
  24. PRAVACHOL [Concomitant]

REACTIONS (1)
  - BREAST CANCER [None]
